FAERS Safety Report 12340029 (Version 1)
Quarter: 2016Q2

REPORT INFORMATION
  Report Type: Spontaneous
  Country: US (occurrence: US)
  Receive Date: 20160506
  Receipt Date: 20160506
  Transmission Date: 20160815
  Serious: Yes (Other)
  Sender: FDA-Public Use
  Company Number: US-PAR PHARMACEUTICAL COMPANIES-2016SCPR015417

PATIENT

DRUGS (1)
  1. ADRENALIN [Suspect]
     Active Substance: EPINEPHRINE
     Indication: PRODUCT USED FOR UNKNOWN INDICATION
     Dosage: 3 ML, SINGLE
     Route: 042
     Dates: start: 201604, end: 201604

REACTIONS (8)
  - Presyncope [Unknown]
  - Incorrect route of drug administration [Unknown]
  - Heart rate decreased [Unknown]
  - Overdose [Unknown]
  - Chest pain [Unknown]
  - Vomiting [Unknown]
  - Pallor [Unknown]
  - Renal failure [Unknown]

NARRATIVE: CASE EVENT DATE: 201604
